FAERS Safety Report 11265497 (Version 3)
Quarter: 2015Q3

REPORT INFORMATION
  Report Type: Spontaneous
  Country: JP (occurrence: JP)
  Receive Date: 20150713
  Receipt Date: 20150807
  Transmission Date: 20151125
  Serious: Yes (Other)
  Sender: FDA-Public Use
  Company Number: JP-PFIZER INC-2015229675

PATIENT
  Age: 60 Year
  Sex: Male

DRUGS (1)
  1. CHAMPIX [Suspect]
     Active Substance: VARENICLINE TARTRATE
     Indication: NICOTINE DEPENDENCE
     Dosage: 0.5 MG, DAILY
     Route: 048
     Dates: start: 20150429, end: 20150430

REACTIONS (3)
  - Dizziness postural [Recovering/Resolving]
  - Retinal haemorrhage [Recovering/Resolving]
  - White matter lesion [Unknown]

NARRATIVE: CASE EVENT DATE: 201505
